FAERS Safety Report 10165374 (Version 1)
Quarter: 2014Q2

REPORT INFORMATION
  Report Type: Spontaneous
  Country: US (occurrence: US)
  Receive Date: 20140510
  Receipt Date: 20140510
  Transmission Date: 20141212
  Serious: No
  Sender: FDA-Public Use
  Company Number: US-BRISTOL-MYERS SQUIBB COMPANY-20417457

PATIENT
  Age: 67 Year
  Sex: Male

DRUGS (6)
  1. BYDUREON [Suspect]
     Indication: TYPE 2 DIABETES MELLITUS
     Route: 058
     Dates: start: 201401
  2. METFORMIN HCL [Concomitant]
  3. JANUVIA [Concomitant]
  4. HYDROCHLOROTHIAZIDE [Concomitant]
  5. ZETIA [Concomitant]
     Indication: BLOOD CHOLESTEROL
  6. ASPIRIN [Concomitant]

REACTIONS (1)
  - Injection site nodule [Not Recovered/Not Resolved]
